FAERS Safety Report 5328592-9 (Version None)
Quarter: 2007Q2

REPORT INFORMATION
  Report Type: 
  Country: None (occurrence: None)
  Receive Date: 20070518
  Receipt Date: 20070504
  Transmission Date: 20071010
  Serious: Yes (Hospitalization)
  Sender: FDA-Public Use
  Company Number: AT-ROCHE-496455

PATIENT
  Age: 55 Year
  Sex: Female
  Weight: 58 kg

DRUGS (6)
  1. CAPECITABINE [Suspect]
     Indication: BREAST CANCER
     Dosage: GIVEN ON DAYS 1-14 OF 21 DAY CYCLE.
     Route: 048
     Dates: start: 20070427
  2. TRASTUZUMAB [Suspect]
     Indication: BREAST CANCER
     Dosage: FORM REPORTED AS ^INFUSION^.
     Route: 042
     Dates: start: 20070427
  3. DOCETAXEL [Suspect]
     Indication: BREAST CANCER
     Dosage: FORM REPORTED AS ^INFUSION^.
     Route: 042
     Dates: start: 20070427
  4. EPIRUBICIN [Suspect]
     Indication: BREAST CANCER
     Dosage: FORM REPORTED AS ^INFUSION^.
     Route: 042
     Dates: start: 20070427
  5. PANTOPRAZOLE SODIUM [Concomitant]
     Dates: start: 20070427
  6. BLOPRESS [Concomitant]

REACTIONS (1)
  - LEUKOPENIA [None]
